FAERS Safety Report 21264511 (Version 1)
Quarter: 2022Q3

REPORT INFORMATION
  Report Type: Spontaneous
  Country: FR (occurrence: None)
  Receive Date: 20220829
  Receipt Date: 20220829
  Transmission Date: 20221027
  Serious: Yes (Death)
  Sender: FDA-Public Use
  Company Number: FR-Orion Corporation ORION PHARMA-TREX2022-0153

PATIENT
  Age: 74 Year
  Sex: Female

DRUGS (7)
  1. METHOTREXATE [Suspect]
     Active Substance: METHOTREXATE
     Indication: Rheumatoid arthritis
     Route: 048
     Dates: start: 2010
  2. TOCILIZUMAB [Suspect]
     Active Substance: TOCILIZUMAB
     Indication: Rheumatoid arthritis
     Route: 042
     Dates: start: 20100930, end: 20220330
  3. NEBIVOLOL [Concomitant]
     Active Substance: NEBIVOLOL
     Indication: Hypertension
     Route: 048
  4. ROSUVASTATIN [Concomitant]
     Active Substance: ROSUVASTATIN
     Indication: Myocardial ischaemia
     Route: 048
  5. KARDEGIC [Concomitant]
     Active Substance: ASPIRIN DL-LYSINE
     Indication: Ischaemic cardiomyopathy
     Dosage: STRENGTH: 75 MG
     Route: 048
  6. CANDESARTAN CILEXETIL [Concomitant]
     Active Substance: CANDESARTAN CILEXETIL
     Indication: Hypertension
     Route: 048
  7. EZETIMIBE [Concomitant]
     Active Substance: EZETIMIBE
     Indication: Ischaemic cardiomyopathy
     Route: 065

REACTIONS (1)
  - Dedifferentiated liposarcoma [Fatal]

NARRATIVE: CASE EVENT DATE: 20220501
